FAERS Safety Report 15001107 (Version 1)
Quarter: 2018Q2

REPORT INFORMATION
  Report Type: Spontaneous
  Country: GB (occurrence: GB)
  Receive Date: 20180612
  Receipt Date: 20180612
  Transmission Date: 20180711
  Serious: Yes (Disabling)
  Sender: FDA-Public Use
  Company Number: GB-TEVA-2018-GB-905824

PATIENT
  Age: 62 Year
  Sex: Female
  Weight: 88 kg

DRUGS (18)
  1. OMEPRAZOLE. [Concomitant]
     Active Substance: OMEPRAZOLE
     Dosage: 1 DOSAGE FORMS DAILY;
     Route: 065
     Dates: start: 20170801
  2. COLECALCIFEROL [Concomitant]
     Active Substance: CHOLECALCIFEROL
     Dosage: FOR 12 WEEKS
     Route: 065
     Dates: start: 20170801
  3. DOXYCYCLINE. [Suspect]
     Active Substance: DOXYCYCLINE
     Route: 065
     Dates: start: 20180410
  4. SALAMOL [Concomitant]
     Active Substance: ALBUTEROL
     Dosage: AS DIRECTED
     Route: 065
     Dates: start: 20170801
  5. QVAR [Concomitant]
     Active Substance: BECLOMETHASONE DIPROPIONATE
     Dosage: 2 DOSAGE FORMS DAILY;
     Route: 055
     Dates: start: 20180125
  6. COLOFAC [Concomitant]
     Active Substance: MEBEVERINE HYDROCHLORIDE
     Dosage: 3 DOSAGE FORMS DAILY;
     Dates: start: 20170801
  7. GLUCOPHAGE [Concomitant]
     Active Substance: METFORMIN HYDROCHLORIDE
     Dosage: 2 DOSAGE FORMS DAILY;
     Route: 065
     Dates: start: 20170801
  8. EMERADE [Concomitant]
     Dosage: USE AS DIRECTED
     Route: 065
     Dates: start: 20180410
  9. EPIPEN [Concomitant]
     Active Substance: EPINEPHRINE
     Dosage: AS DIRECTED
     Route: 065
     Dates: start: 20140514
  10. SIMVASTATIN. [Concomitant]
     Active Substance: SIMVASTATIN
     Dosage: 1 DOSAGE FORMS DAILY; AT NIGHT
     Route: 065
     Dates: start: 20171031
  11. FLUOXETINE [Concomitant]
     Active Substance: FLUOXETINE HYDROCHLORIDE
     Dosage: 1 DOSAGE FORMS DAILY;
     Route: 065
     Dates: start: 20170801
  12. PHENOXYMETHYLPENICILLIN [Concomitant]
     Active Substance: PENICILLIN V
     Dosage: 8 DOSAGE FORMS DAILY;
     Dates: start: 20180322, end: 20180327
  13. ZAPAIN [Concomitant]
     Active Substance: ACETAMINOPHEN\CODEINE PHOSPHATE
     Dosage: TAKE ONE OR TWO UP TO FOUR TIMES DAILY
     Dates: start: 20180410
  14. HYLO-FORTE [Concomitant]
     Active Substance: HYALURONATE SODIUM
     Dosage: TO BOTH EYES
     Dates: start: 20170116
  15. BUSCOPAN [Concomitant]
     Active Substance: BUTYLSCOPOLAMINE BROMIDE
     Dosage: AS DIRECTED
     Route: 065
     Dates: start: 20170801
  16. ESTRIOL [Concomitant]
     Active Substance: ESTRIOL
     Dosage: 2 DOSAGE FORMS DAILY; APPLY AT NIGHT
     Route: 065
     Dates: start: 20170704
  17. IBUPROFEN. [Concomitant]
     Active Substance: IBUPROFEN
     Dosage: THREE TIMES A DAY
     Route: 065
     Dates: start: 20170801
  18. FEXOFENADINE [Concomitant]
     Active Substance: FEXOFENADINE\FEXOFENADINE HYDROCHLORIDE
     Dosage: 1 DOSAGE FORMS DAILY;
     Dates: start: 20170801

REACTIONS (2)
  - Nausea [Recovered/Resolved]
  - Sinusitis [Unknown]

NARRATIVE: CASE EVENT DATE: 20180410
